FAERS Safety Report 16680218 (Version 1)
Quarter: 2019Q3

REPORT INFORMATION
  Report Type: Spontaneous
  Country: US (occurrence: US)
  Receive Date: 20190807
  Receipt Date: 20190807
  Transmission Date: 20191004
  Serious: No
  Sender: FDA-Public Use
  Company Number: US-GE HEALTHCARE LIFE SCIENCES-2019CSU002681

PATIENT
  Age: 77 Year
  Sex: Male

DRUGS (19)
  1. ATORVASTATIN [Concomitant]
     Active Substance: ATORVASTATIN
  2. PANTOPRAZOLE [Concomitant]
     Active Substance: PANTOPRAZOLE
  3. NOVOLOG [Concomitant]
     Active Substance: INSULIN ASPART
  4. JARDIANCE [Concomitant]
     Active Substance: EMPAGLIFLOZIN
  5. BUPROPION. [Concomitant]
     Active Substance: BUPROPION
  6. ELIQUIS [Concomitant]
     Active Substance: APIXABAN
  7. LANTUS [Concomitant]
     Active Substance: INSULIN GLARGINE
  8. MYRBETRIQ [Concomitant]
     Active Substance: MIRABEGRON
  9. DILT-XR [Concomitant]
     Active Substance: DILTIAZEM
  10. DATSCAN [Suspect]
     Active Substance: IODINE\IOFLUPANE I-123
     Indication: DIAGNOSTIC PROCEDURE
     Dosage: UNK, SINGLE
     Route: 065
     Dates: start: 20190514, end: 20190514
  11. ARMODAFINIL. [Concomitant]
     Active Substance: ARMODAFINIL
  12. LEVOTHYROXINE. [Concomitant]
     Active Substance: LEVOTHYROXINE
  13. DATSCAN [Suspect]
     Active Substance: IODINE\IOFLUPANE I-123
     Indication: PRODUCT USED FOR UNKNOWN INDICATION
  14. DONEPEZIL. [Concomitant]
     Active Substance: DONEPEZIL
  15. CETIRIZINE [Concomitant]
     Active Substance: CETIRIZINE HYDROCHLORIDE
  16. FERROUS GLUCONATE [Concomitant]
     Active Substance: FERROUS GLUCONATE
  17. FINASTERIDE. [Concomitant]
     Active Substance: FINASTERIDE
  18. CLOPIDOGREL [Concomitant]
     Active Substance: CLOPIDOGREL BISULFATE
  19. MECLIZINE [Concomitant]
     Active Substance: MECLIZINE HYDROCHLORIDE

REACTIONS (2)
  - Radioisotope scan abnormal [Recovered/Resolved]
  - No adverse event [Recovered/Resolved]

NARRATIVE: CASE EVENT DATE: 20190514
